FAERS Safety Report 22062485 (Version 2)
Quarter: 2023Q1

REPORT INFORMATION
  Report Type: Spontaneous
  Country: TH (occurrence: TH)
  Receive Date: 20230305
  Receipt Date: 20230308
  Transmission Date: 20230417
  Serious: Yes (Other)
  Sender: FDA-Public Use
  Company Number: TH-002147023-NVSC2023TH044879

PATIENT
  Age: 58 Year
  Sex: Female

DRUGS (6)
  1. VORICONAZOLE [Suspect]
     Active Substance: VORICONAZOLE
     Indication: Bronchopulmonary aspergillosis
     Dosage: 200, BID FOR 3 MONTHS
     Route: 065
  2. VORICONAZOLE [Suspect]
     Active Substance: VORICONAZOLE
     Indication: Pneumonia cytomegaloviral
  3. GANCICLOVIR [Concomitant]
     Active Substance: GANCICLOVIR
     Indication: Bronchopulmonary aspergillosis
     Dosage: UNK, FOR 3 WEEKS
     Route: 042
  4. GANCICLOVIR [Concomitant]
     Active Substance: GANCICLOVIR
     Indication: Pneumonia cytomegaloviral
  5. VALGANCICLOVIR [Concomitant]
     Active Substance: VALGANCICLOVIR
     Indication: Bronchopulmonary aspergillosis
     Dosage: 450, QD FOR 3 MONTHS
     Route: 065
  6. VALGANCICLOVIR [Concomitant]
     Active Substance: VALGANCICLOVIR
     Indication: Pneumonia cytomegaloviral

REACTIONS (5)
  - Polyomavirus-associated nephropathy [Unknown]
  - Complications of transplanted kidney [Unknown]
  - Malnutrition [Unknown]
  - Decubitus ulcer [Unknown]
  - Blood creatinine increased [Unknown]
